FAERS Safety Report 17981951 (Version 1)
Quarter: 2020Q3

REPORT INFORMATION
  Report Type: Spontaneous
  Country: US (occurrence: US)
  Receive Date: 20200706
  Receipt Date: 20200706
  Transmission Date: 20201103
  Serious: No
  Sender: FDA-Public Use
  Company Number: US-STRIDES ARCOLAB LIMITED-2020SP004464

PATIENT
  Age: 18 Year
  Sex: Female

DRUGS (3)
  1. AMPHOTERICIN?B [Suspect]
     Active Substance: AMPHOTERICIN B
     Dosage: 40 MILLIGRAM, THRICE  A WEEK
     Route: 042
  2. KETOCONAZOLE. [Suspect]
     Active Substance: KETOCONAZOLE
     Indication: CUTANEOUS BLASTOMYCOSIS
     Dosage: UNK, CREAM TWICE DAILY
     Route: 061
  3. AMPHOTERICIN?B [Suspect]
     Active Substance: AMPHOTERICIN B
     Indication: CUTANEOUS BLASTOMYCOSIS
     Dosage: 20 MILLIGRAM
     Route: 042

REACTIONS (1)
  - Maternal exposure during pregnancy [Unknown]
